FAERS Safety Report 11220060 (Version 1)
Quarter: 2015Q2

REPORT INFORMATION
  Report Type: Spontaneous
  Country: FR (occurrence: FR)
  Receive Date: 20150625
  Receipt Date: 20150625
  Transmission Date: 20150821
  Serious: Yes (Congenital Anomaly, Other)
  Sender: FDA-Public Use
  Company Number: FR-ABBVIE-15P-056-1415577-00

PATIENT
  Age: 0 Day
  Sex: Male

DRUGS (1)
  1. DEPAKINE [Suspect]
     Active Substance: VALPROATE SODIUM
     Indication: MATERNAL EXPOSURE TIMING UNSPECIFIED
     Route: 064

REACTIONS (8)
  - Skull malformation [Unknown]
  - Motor developmental delay [Unknown]
  - Foetal exposure during pregnancy [Unknown]
  - Thrombocytopenia neonatal [Recovered/Resolved]
  - Speech disorder developmental [Unknown]
  - Inguinal hernia [Recovered/Resolved]
  - Hypospadias [Recovered/Resolved]
  - Hypotonia neonatal [Unknown]

NARRATIVE: CASE EVENT DATE: 20131218
